FAERS Safety Report 4657922-6 (Version None)
Quarter: 2005Q2

REPORT INFORMATION
  Report Type: 
  Country: None (occurrence: None)
  Receive Date: 20050504
  Receipt Date: 20040305
  Transmission Date: 20051028
  Serious: Yes (Other)
  Sender: FDA-Public Use
  Company Number: 001117

PATIENT
  Age: 63 Year
  Sex: Female

DRUGS (7)
  1. CENESTIN [Suspect]
     Indication: HORMONE REPLACEMENT THERAPY
     Dates: start: 20000519, end: 20010512
  2. PROVERA [Suspect]
     Dates: start: 19920101, end: 19960220
  3. PROVERA [Suspect]
     Dates: start: 20000519, end: 20010512
  4. PREMPRO (MEDROXYPROGESTERONE ACETATE, ESROGENS CONJUGATED) [Suspect]
     Dates: start: 19960220, end: 20020501
  5. PREMARIN [Suspect]
     Dates: start: 19920101, end: 19960220
  6. . [Concomitant]
  7. . [Concomitant]

REACTIONS (1)
  - BREAST CANCER [None]
